FAERS Safety Report 8321248-X (Version None)
Quarter: 2012Q2

REPORT INFORMATION
  Report Type: 
  Country: None (occurrence: None)
  Receive Date: 20120430
  Receipt Date: 20120420
  Transmission Date: 20120825
  Serious: Yes (Hospitalization, Other)
  Sender: FDA-Public Use
  Company Number: US-BRISTOL-MYERS SQUIBB COMPANY-16539157

PATIENT
  Age: 67 Year
  Sex: Female

DRUGS (18)
  1. VITAMIN B-12 [Concomitant]
  2. NEURONTIN [Concomitant]
  3. CALCIUM [Concomitant]
  4. ADVAIR DISKUS 100/50 [Concomitant]
  5. FLONASE [Concomitant]
     Dosage: SPRAY
  6. MECLIZINE [Concomitant]
  7. PREDNISONE [Concomitant]
  8. SINGULAIR [Concomitant]
  9. PRILOSEC [Concomitant]
  10. MULTI-VITAMIN [Concomitant]
  11. COUMADIN [Suspect]
     Indication: PULMONARY EMBOLISM
  12. PLAQUENIL [Concomitant]
  13. COLESTIPOL HYDROCHLORIDE [Concomitant]
  14. FORTEO [Suspect]
     Indication: OSTEOPOROSIS
     Dosage: PEN DISPOSABLE
     Route: 058
     Dates: start: 20110101
  15. COREG [Concomitant]
  16. SPIRIVA [Concomitant]
  17. AZELASTINE HCL [Concomitant]
     Dosage: SPRAY
  18. CELEBREX [Concomitant]

REACTIONS (9)
  - FALL [None]
  - PSEUDOMONAS INFECTION [None]
  - ANTIPHOSPHOLIPID SYNDROME [None]
  - CHEST DISCOMFORT [None]
  - HAEMORRHAGE [None]
  - PLEURAL EFFUSION [None]
  - RESPIRATORY TRACT INFECTION FUNGAL [None]
  - SYSTEMIC LUPUS ERYTHEMATOSUS [None]
  - FRACTURED COCCYX [None]
